FAERS Safety Report 4657198-X (Version None)
Quarter: 2005Q2

REPORT INFORMATION
  Report Type: 
  Country: None (occurrence: None)
  Receive Date: 20050506
  Receipt Date: 20050425
  Transmission Date: 20051028
  Serious: Yes (Other)
  Sender: FDA-Public Use
  Company Number: 2005064804

PATIENT
  Sex: Female
  Weight: 73.0291 kg

DRUGS (3)
  1. BENADRYL [Suspect]
     Indication: SLEEP DISORDER
     Dosage: 2 ULTRATABS HS BEGINNING IN
     Dates: start: 19850101
  2. METOPROLOL TARTRATE [Concomitant]
  3. CLONIDINE [Concomitant]

REACTIONS (4)
  - DRUG DEPENDENCE [None]
  - INSOMNIA [None]
  - OVERDOSE [None]
  - PARAESTHESIA [None]
